FAERS Safety Report 6589369-X (Version None)
Quarter: 2010Q1

REPORT INFORMATION
  Report Type: 
  Country: None (occurrence: None)
  Receive Date: 20100218
  Receipt Date: 20100211
  Transmission Date: 20100710
  Serious: Yes (Other)
  Sender: FDA-Public Use
  Company Number: US-B.I. PHARMACEUTICALS,INC./RIDGEFIELD-2010-BP-01862PF

PATIENT
  Sex: Female

DRUGS (7)
  1. SPIRIVA [Suspect]
     Indication: PULMONARY CONGESTION
     Route: 055
     Dates: start: 20091201, end: 20091201
  2. SPIRIVA [Suspect]
     Indication: EMPHYSEMA
  3. REVATIO [Concomitant]
     Indication: PULMONARY HYPERTENSION
     Dosage: UP TO 4X/DAY
     Dates: start: 20091101
  4. GLUCOPHAGE [Concomitant]
     Indication: DIABETES MELLITUS
     Dosage: 500 MG
     Dates: start: 20060101
  5. LASIX [Concomitant]
     Indication: FLUID RETENTION
  6. ALDACTONE [Concomitant]
     Indication: FLUID RETENTION
  7. PLAVIX [Concomitant]
     Indication: STENT PLACEMENT

REACTIONS (4)
  - CONSTIPATION [None]
  - URINARY RETENTION [None]
  - VISION BLURRED [None]
  - WEIGHT INCREASED [None]
